FAERS Safety Report 9333001 (Version 1)
Quarter: 2013Q2

REPORT INFORMATION
  Report Type: Spontaneous
  Country: US (occurrence: None)
  Receive Date: 20130603
  Receipt Date: 20130603
  Transmission Date: 20140414
  Serious: Yes (Other)
  Sender: FDA-Public Use
  Company Number: AUR-APL-2013-04337

PATIENT
  Sex: Male

DRUGS (2)
  1. METFORMIN (METFORMIN) [Suspect]
     Indication: DIABETES MELLITUS
  2. LYRICA (PREGABALIN) [Suspect]

REACTIONS (3)
  - Drug ineffective [None]
  - Convulsion [None]
  - Drug interaction [None]
